FAERS Safety Report 13229904 (Version 2)
Quarter: 2017Q1

REPORT INFORMATION
  Report Type: Spontaneous
  Country: US (occurrence: US)
  Receive Date: 20170214
  Receipt Date: 20170221
  Transmission Date: 20170428
  Serious: No
  Sender: FDA-Public Use
  Company Number: US-PFIZER INC-2016085732

PATIENT
  Age: 63 Year
  Sex: Female

DRUGS (17)
  1. IBANDRONATE [Concomitant]
     Active Substance: IBANDRONATE SODIUM
     Dosage: UNK
  2. MOBIC [Concomitant]
     Active Substance: MELOXICAM
     Dosage: UNK
  3. BENAZEPRIL AND HYDROCHLOROTHIAZIDE [Concomitant]
     Active Substance: BENAZEPRIL HYDROCHLORIDE\HYDROCHLOROTHIAZIDE
     Dosage: UNK
  4. LIPITOR [Concomitant]
     Active Substance: ATORVASTATIN CALCIUM
     Dosage: UNK
  5. HYDROCODONE [Concomitant]
     Active Substance: HYDROCODONE
     Dosage: UNK
  6. THEOPHYLLINE [Concomitant]
     Active Substance: THEOPHYLLINE ANHYDROUS
     Dosage: UNK
  7. BENAZEPRIL [Concomitant]
     Active Substance: BENAZEPRIL HYDROCHLORIDE
     Dosage: UNK
  8. MELOXICAM. [Concomitant]
     Active Substance: MELOXICAM
     Dosage: UNK
  9. LYRICA [Suspect]
     Active Substance: PREGABALIN
     Indication: ARTHRALGIA
     Dosage: 150 MG, 3X/DAY
     Route: 048
  10. MORPHINE SULFATE ER [Concomitant]
     Active Substance: MORPHINE SULFATE
     Dosage: UNK
  11. OMEPRAZOLE. [Concomitant]
     Active Substance: OMEPRAZOLE
     Dosage: UNK
  12. PROAIR HFA [Concomitant]
     Active Substance: ALBUTEROL SULFATE
     Dosage: UNK
  13. ATORVASTATIN [Concomitant]
     Active Substance: ATORVASTATIN
     Dosage: UNK
  14. XANAX [Concomitant]
     Active Substance: ALPRAZOLAM
     Dosage: UNK
  15. BREO ELLIPTA [Concomitant]
     Active Substance: FLUTICASONE FUROATE\VILANTEROL TRIFENATATE
     Dosage: UNK
  16. LYRICA [Suspect]
     Active Substance: PREGABALIN
     Indication: SPINAL OSTEOARTHRITIS
  17. MS CONTIN [Concomitant]
     Active Substance: MORPHINE SULFATE
     Dosage: UNK

REACTIONS (2)
  - Product use issue [Unknown]
  - Malaise [Unknown]
